FAERS Safety Report 5680812-7 (Version None)
Quarter: 2008Q1

REPORT INFORMATION
  Report Type: 
  Country: None (occurrence: None)
  Receive Date: 20080326
  Receipt Date: 20080103
  Transmission Date: 20080703
  Serious: Yes (Other)
  Sender: FDA-Public Use
  Company Number: FR-WYE-G00582107

PATIENT
  Sex: Male
  Weight: 98 kg

DRUGS (3)
  1. BENEFIX [Suspect]
     Indication: FACTOR IX DEFICIENCY
     Dosage: 4000 IU PER INJECTION
     Route: 042
     Dates: start: 20071101, end: 20071101
  2. BENEFIX [Suspect]
     Dosage: TWO INJECTIONS, 4000 IU PER INJECTION
     Route: 042
     Dates: start: 20070601, end: 20071001
  3. MESTINON [Concomitant]

REACTIONS (4)
  - COLD SWEAT [None]
  - HYPERSENSITIVITY [None]
  - HYPOTENSION [None]
  - PRURITUS [None]
